APPROVED DRUG PRODUCT: ALBUTEROL SULFATE
Active Ingredient: ALBUTEROL SULFATE
Strength: EQ 2MG BASE
Dosage Form/Route: TABLET;ORAL
Application: A072894 | Product #002 | TE Code: AB
Applicant: DASH PHARMACEUTICALS LLC A FULLY OWNED SUB OF NATCO PHARMA LTD
Approved: Jan 17, 1991 | RLD: No | RS: No | Type: RX